FAERS Safety Report 4568243-4 (Version None)
Quarter: 2005Q1

REPORT INFORMATION
  Report Type: 
  Country: None (occurrence: None)
  Receive Date: 20050128
  Receipt Date: 20040524
  Transmission Date: 20050727
  Serious: Yes (Other)
  Sender: FDA-Public Use
  Company Number: C-04-0029

PATIENT
  Age: 15 Year
  Sex: Male
  Weight: 72.5755 kg

DRUGS (1)
  1. PROMETHAZINE HCL AND DEXTROMETHORPHAN HBR [Suspect]
     Indication: RESPIRATORY TRACT INFECTION
     Dosage: 2 TSP. 3 TIMES/DAY ORALLY
     Route: 048
     Dates: start: 20040329, end: 20040402

REACTIONS (5)
  - CONFUSIONAL STATE [None]
  - EDUCATIONAL PROBLEM [None]
  - FEAR [None]
  - OBSESSIVE THOUGHTS [None]
  - THINKING ABNORMAL [None]
